FAERS Safety Report 24871546 (Version 2)
Quarter: 2025Q1

REPORT INFORMATION
  Report Type: Report from Study
  Country: PK (occurrence: PK)
  Receive Date: 20250122
  Receipt Date: 20250203
  Transmission Date: 20250409
  Serious: Yes (Death)
  Sender: ROCHE
  Company Number: PK-ROCHE-10000185972

PATIENT
  Age: 65 Year
  Sex: Female

DRUGS (1)
  1. RITUXIMAB [Suspect]
     Active Substance: RITUXIMAB
     Indication: Diffuse large B-cell lymphoma
     Route: 040
     Dates: start: 20241115, end: 20241205

REACTIONS (1)
  - Neoplasm malignant [Fatal]
